FAERS Safety Report 25643604 (Version 1)
Quarter: 2025Q3

REPORT INFORMATION
  Report Type: Spontaneous
  Country: GB (occurrence: GB)
  Receive Date: 20250805
  Receipt Date: 20250805
  Transmission Date: 20251020
  Serious: Yes (Other)
  Sender: MYLAN
  Company Number: GB-MHRA-TPP11154019C10665050YC1753874791584

PATIENT
  Age: 75 Year
  Sex: Female
  Weight: 88 kg

DRUGS (76)
  1. SERTRALINE [Suspect]
     Active Substance: SERTRALINE HYDROCHLORIDE
     Indication: Anxiety
     Dosage: 1 DOSAGE FORM, QD (TAKE ONE TABLET DAILY FOR ANXIETY/DEPRESSION)
     Dates: start: 20250721, end: 20250729
  2. SERTRALINE [Suspect]
     Active Substance: SERTRALINE HYDROCHLORIDE
     Indication: Depression
     Dosage: 1 DOSAGE FORM, QD (TAKE ONE TABLET DAILY FOR ANXIETY/DEPRESSION)
     Route: 048
     Dates: start: 20250721, end: 20250729
  3. SERTRALINE [Suspect]
     Active Substance: SERTRALINE HYDROCHLORIDE
     Dosage: 1 DOSAGE FORM, QD (TAKE ONE TABLET DAILY FOR ANXIETY/DEPRESSION)
     Route: 048
     Dates: start: 20250721, end: 20250729
  4. SERTRALINE [Suspect]
     Active Substance: SERTRALINE HYDROCHLORIDE
     Dosage: 1 DOSAGE FORM, QD (TAKE ONE TABLET DAILY FOR ANXIETY/DEPRESSION)
     Dates: start: 20250721, end: 20250729
  5. CARBOCYSTEINE [Concomitant]
     Active Substance: CARBOCYSTEINE
  6. CARBOCYSTEINE [Concomitant]
     Active Substance: CARBOCYSTEINE
     Route: 065
  7. CARBOCYSTEINE [Concomitant]
     Active Substance: CARBOCYSTEINE
     Route: 065
  8. CARBOCYSTEINE [Concomitant]
     Active Substance: CARBOCYSTEINE
  9. PROCHLORPERAZINE [Concomitant]
     Active Substance: PROCHLORPERAZINE
     Indication: Nausea
     Dates: start: 20250717, end: 20250718
  10. PROCHLORPERAZINE [Concomitant]
     Active Substance: PROCHLORPERAZINE
     Route: 065
     Dates: start: 20250717, end: 20250718
  11. PROCHLORPERAZINE [Concomitant]
     Active Substance: PROCHLORPERAZINE
     Route: 065
     Dates: start: 20250717, end: 20250718
  12. PROCHLORPERAZINE [Concomitant]
     Active Substance: PROCHLORPERAZINE
     Dates: start: 20250717, end: 20250718
  13. DOXYCYCLINE [Concomitant]
     Active Substance: DOXYCYCLINE
  14. DOXYCYCLINE [Concomitant]
     Active Substance: DOXYCYCLINE
     Route: 065
  15. DOXYCYCLINE [Concomitant]
     Active Substance: DOXYCYCLINE
     Route: 065
  16. DOXYCYCLINE [Concomitant]
     Active Substance: DOXYCYCLINE
  17. CEPHALEXIN [Concomitant]
     Active Substance: CEPHALEXIN
     Indication: Infection
     Dosage: 1 DOSAGE FORM, Q8H (TAKE ONE 3 TIMES/DAY FOR INFECTION)
     Dates: start: 20250725
  18. CEPHALEXIN [Concomitant]
     Active Substance: CEPHALEXIN
     Dosage: 1 DOSAGE FORM, Q8H (TAKE ONE 3 TIMES/DAY FOR INFECTION)
     Route: 065
     Dates: start: 20250725
  19. CEPHALEXIN [Concomitant]
     Active Substance: CEPHALEXIN
     Dosage: 1 DOSAGE FORM, Q8H (TAKE ONE 3 TIMES/DAY FOR INFECTION)
     Route: 065
     Dates: start: 20250725
  20. CEPHALEXIN [Concomitant]
     Active Substance: CEPHALEXIN
     Dosage: 1 DOSAGE FORM, Q8H (TAKE ONE 3 TIMES/DAY FOR INFECTION)
     Dates: start: 20250725
  21. Allevyn gentle border [Concomitant]
     Indication: Ill-defined disorder
  22. Allevyn gentle border [Concomitant]
     Route: 065
  23. Allevyn gentle border [Concomitant]
     Route: 065
  24. Allevyn gentle border [Concomitant]
  25. DERMOL [Concomitant]
     Active Substance: BENZALKONIUM CHLORIDE\CHLORHEXIDINE HYDROCHLORIDE\ISOPROPYL MYRISTATE\PARAFFIN
     Dosage: UNK, BID (APPLY TWICE DAILY TO AFFECTED AREAS AND CAN BE...)
     Dates: start: 20250729
  26. DERMOL [Concomitant]
     Active Substance: BENZALKONIUM CHLORIDE\CHLORHEXIDINE HYDROCHLORIDE\ISOPROPYL MYRISTATE\PARAFFIN
     Dosage: UNK, BID (APPLY TWICE DAILY TO AFFECTED AREAS AND CAN BE...)
     Route: 065
     Dates: start: 20250729
  27. DERMOL [Concomitant]
     Active Substance: BENZALKONIUM CHLORIDE\CHLORHEXIDINE HYDROCHLORIDE\ISOPROPYL MYRISTATE\PARAFFIN
     Dosage: UNK, BID (APPLY TWICE DAILY TO AFFECTED AREAS AND CAN BE...)
     Route: 065
     Dates: start: 20250729
  28. DERMOL [Concomitant]
     Active Substance: BENZALKONIUM CHLORIDE\CHLORHEXIDINE HYDROCHLORIDE\ISOPROPYL MYRISTATE\PARAFFIN
     Dosage: UNK, BID (APPLY TWICE DAILY TO AFFECTED AREAS AND CAN BE...)
     Dates: start: 20250729
  29. NITROGLYCERIN [Concomitant]
     Active Substance: NITROGLYCERIN
  30. NITROGLYCERIN [Concomitant]
     Active Substance: NITROGLYCERIN
     Route: 055
  31. NITROGLYCERIN [Concomitant]
     Active Substance: NITROGLYCERIN
     Route: 055
  32. NITROGLYCERIN [Concomitant]
     Active Substance: NITROGLYCERIN
  33. PANTOPRAZOLE [Concomitant]
     Active Substance: PANTOPRAZOLE
     Dosage: 1 DOSAGE FORM, QD
     Dates: start: 20250303
  34. PANTOPRAZOLE [Concomitant]
     Active Substance: PANTOPRAZOLE
     Dosage: 1 DOSAGE FORM, QD
     Route: 065
     Dates: start: 20250303
  35. PANTOPRAZOLE [Concomitant]
     Active Substance: PANTOPRAZOLE
     Dosage: 1 DOSAGE FORM, QD
     Route: 065
     Dates: start: 20250303
  36. PANTOPRAZOLE [Concomitant]
     Active Substance: PANTOPRAZOLE
     Dosage: 1 DOSAGE FORM, QD
     Dates: start: 20250303
  37. LISINOPRIL [Concomitant]
     Active Substance: LISINOPRIL
     Dosage: 1 DOSAGE FORM, QD (ONE EVERY DAY)
     Dates: start: 20250303
  38. LISINOPRIL [Concomitant]
     Active Substance: LISINOPRIL
     Dosage: 1 DOSAGE FORM, QD (ONE EVERY DAY)
     Route: 065
     Dates: start: 20250303
  39. LISINOPRIL [Concomitant]
     Active Substance: LISINOPRIL
     Dosage: 1 DOSAGE FORM, QD (ONE EVERY DAY)
     Route: 065
     Dates: start: 20250303
  40. LISINOPRIL [Concomitant]
     Active Substance: LISINOPRIL
     Dosage: 1 DOSAGE FORM, QD (ONE EVERY DAY)
     Dates: start: 20250303
  41. BRICANYL [Concomitant]
     Active Substance: TERBUTALINE SULFATE
     Indication: Ill-defined disorder
  42. BRICANYL [Concomitant]
     Active Substance: TERBUTALINE SULFATE
     Indication: Dyspnoea
     Route: 055
  43. BRICANYL [Concomitant]
     Active Substance: TERBUTALINE SULFATE
     Route: 055
  44. BRICANYL [Concomitant]
     Active Substance: TERBUTALINE SULFATE
  45. ATORVASTATIN [Concomitant]
     Active Substance: ATORVASTATIN
     Indication: Ill-defined disorder
     Dosage: 1 DOSAGE FORM, QD (ONE EVERY DAY)
     Dates: start: 20250303
  46. ATORVASTATIN [Concomitant]
     Active Substance: ATORVASTATIN
     Dosage: 1 DOSAGE FORM, QD (ONE EVERY DAY)
     Route: 065
     Dates: start: 20250303
  47. ATORVASTATIN [Concomitant]
     Active Substance: ATORVASTATIN
     Dosage: 1 DOSAGE FORM, QD (ONE EVERY DAY)
     Route: 065
     Dates: start: 20250303
  48. ATORVASTATIN [Concomitant]
     Active Substance: ATORVASTATIN
     Dosage: 1 DOSAGE FORM, QD (ONE EVERY DAY)
     Dates: start: 20250303
  49. BECLOMETHASONE\FORMOTEROL [Concomitant]
     Active Substance: BECLOMETHASONE\FORMOTEROL
     Indication: Ill-defined disorder
     Dosage: 2 DOSAGE FORM, BID (TWO PUFFS TWICE DAILY)
     Dates: start: 20250303
  50. BECLOMETHASONE\FORMOTEROL [Concomitant]
     Active Substance: BECLOMETHASONE\FORMOTEROL
     Dosage: 2 DOSAGE FORM, BID (TWO PUFFS TWICE DAILY)
     Route: 055
     Dates: start: 20250303
  51. BECLOMETHASONE\FORMOTEROL [Concomitant]
     Active Substance: BECLOMETHASONE\FORMOTEROL
     Dosage: 2 DOSAGE FORM, BID (TWO PUFFS TWICE DAILY)
     Route: 055
     Dates: start: 20250303
  52. BECLOMETHASONE\FORMOTEROL [Concomitant]
     Active Substance: BECLOMETHASONE\FORMOTEROL
     Dosage: 2 DOSAGE FORM, BID (TWO PUFFS TWICE DAILY)
     Dates: start: 20250303
  53. ACTRAPID [Concomitant]
     Active Substance: INSULIN HUMAN
     Indication: Ill-defined disorder
  54. ACTRAPID [Concomitant]
     Active Substance: INSULIN HUMAN
     Route: 065
  55. ACTRAPID [Concomitant]
     Active Substance: INSULIN HUMAN
     Route: 065
  56. ACTRAPID [Concomitant]
     Active Substance: INSULIN HUMAN
  57. ASPIRIN [Concomitant]
     Active Substance: ASPIRIN
     Indication: Ill-defined disorder
     Dosage: 1 DOSAGE FORM, AM (ONE EVERY MORNING)
     Dates: start: 20250303
  58. ASPIRIN [Concomitant]
     Active Substance: ASPIRIN
     Dosage: 1 DOSAGE FORM, AM (ONE EVERY MORNING)
     Route: 065
     Dates: start: 20250303
  59. ASPIRIN [Concomitant]
     Active Substance: ASPIRIN
     Dosage: 1 DOSAGE FORM, AM (ONE EVERY MORNING)
     Route: 065
     Dates: start: 20250303
  60. ASPIRIN [Concomitant]
     Active Substance: ASPIRIN
     Dosage: 1 DOSAGE FORM, AM (ONE EVERY MORNING)
     Dates: start: 20250303
  61. FUROSEMIDE [Concomitant]
     Active Substance: FUROSEMIDE
     Indication: Ill-defined disorder
     Dosage: 1 DOSAGE FORM, AM (TAKE ONE EACH MORNING ALMUS ONLY)
     Dates: start: 20250303
  62. FUROSEMIDE [Concomitant]
     Active Substance: FUROSEMIDE
     Dosage: 1 DOSAGE FORM, AM (TAKE ONE EACH MORNING ALMUS ONLY)
     Route: 065
     Dates: start: 20250303
  63. FUROSEMIDE [Concomitant]
     Active Substance: FUROSEMIDE
     Dosage: 1 DOSAGE FORM, AM (TAKE ONE EACH MORNING ALMUS ONLY)
     Route: 065
     Dates: start: 20250303
  64. FUROSEMIDE [Concomitant]
     Active Substance: FUROSEMIDE
     Dosage: 1 DOSAGE FORM, AM (TAKE ONE EACH MORNING ALMUS ONLY)
     Dates: start: 20250303
  65. IBUPROFEN [Concomitant]
     Active Substance: IBUPROFEN
     Indication: Ill-defined disorder
  66. IBUPROFEN [Concomitant]
     Active Substance: IBUPROFEN
     Route: 065
  67. IBUPROFEN [Concomitant]
     Active Substance: IBUPROFEN
     Route: 065
  68. IBUPROFEN [Concomitant]
     Active Substance: IBUPROFEN
  69. LANTUS [Concomitant]
     Active Substance: INSULIN GLARGINE
     Indication: Ill-defined disorder
  70. LANTUS [Concomitant]
     Active Substance: INSULIN GLARGINE
     Route: 065
  71. LANTUS [Concomitant]
     Active Substance: INSULIN GLARGINE
     Route: 065
  72. LANTUS [Concomitant]
     Active Substance: INSULIN GLARGINE
  73. ACETAMINOPHEN [Concomitant]
     Active Substance: ACETAMINOPHEN
     Indication: Ill-defined disorder
  74. ACETAMINOPHEN [Concomitant]
     Active Substance: ACETAMINOPHEN
     Route: 065
  75. ACETAMINOPHEN [Concomitant]
     Active Substance: ACETAMINOPHEN
     Route: 065
  76. ACETAMINOPHEN [Concomitant]
     Active Substance: ACETAMINOPHEN

REACTIONS (4)
  - Blood glucose increased [Unknown]
  - Restless legs syndrome [Recovered/Resolved]
  - Nausea [Recovered/Resolved]
  - Diarrhoea [Recovered/Resolved]

NARRATIVE: CASE EVENT DATE: 20250725
